FAERS Safety Report 8485509-6 (Version None)
Quarter: 2012Q3

REPORT INFORMATION
  Report Type: 
  Country: None (occurrence: None)
  Receive Date: 20120703
  Receipt Date: 20120628
  Transmission Date: 20120928
  Serious: Yes (Other)
  Sender: FDA-Public Use
  Company Number: US-PFIZER INC-2005140837

PATIENT
  Sex: Male

DRUGS (4)
  1. CALAN [Suspect]
     Indication: HYPERTENSION
     Dosage: 240 MG, DAILY
     Route: 048
     Dates: start: 19880101, end: 20020101
  2. CADUET [Suspect]
     Indication: HYPERTENSION
     Dosage: 5 MG, UNK
     Dates: start: 20050901
  3. VERAPAMIL HCL [Suspect]
     Indication: HYPERTENSION
     Dosage: 240 MG, DAILY
     Route: 048
     Dates: start: 20020101
  4. DEPAKOTE [Suspect]
     Indication: SCHIZOPHRENIA
     Dosage: UNK
     Route: 065

REACTIONS (3)
  - WEIGHT INCREASED [None]
  - BLOOD PRESSURE INCREASED [None]
  - SCHIZOPHRENIA [None]
